FAERS Safety Report 15882052 (Version 2)
Quarter: 2019Q1

REPORT INFORMATION
  Report Type: Spontaneous
  Country: CA (occurrence: CA)
  Receive Date: 20190128
  Receipt Date: 20190131
  Transmission Date: 20190417
  Serious: Yes (Hospitalization)
  Sender: FDA-Public Use
  Company Number: CA-ACTELION-A-NJ2019-185143

PATIENT
  Age: 81 Year
  Sex: Female

DRUGS (14)
  1. ONBREZ BREEZHALER [Concomitant]
     Active Substance: INDACATEROL
  2. OXAZEPAM. [Concomitant]
     Active Substance: OXAZEPAM
  3. VITAMIN C [Concomitant]
     Active Substance: ASCORBIC ACID
  4. GABAPENTIN. [Concomitant]
     Active Substance: GABAPENTIN
  5. TRACLEER [Suspect]
     Active Substance: BOSENTAN
     Indication: PULMONARY ARTERIAL HYPERTENSION
     Dosage: 125 MG, UNK
     Route: 048
     Dates: start: 20181008
  6. REVATIO [Concomitant]
     Active Substance: SILDENAFIL CITRATE
  7. CRESTOR [Concomitant]
     Active Substance: ROSUVASTATIN CALCIUM
  8. RISEDRONATE [Concomitant]
     Active Substance: RISEDRONATE SODIUM
  9. TRIAMTERENE. [Concomitant]
     Active Substance: TRIAMTERENE
  10. L-THYROXINE [Concomitant]
     Active Substance: LEVOTHYROXINE
  11. AMLODIPINE [Concomitant]
     Active Substance: AMLODIPINE BESYLATE
  12. VITAMIN D [Concomitant]
     Active Substance: CHOLECALCIFEROL
  13. OXYGEN. [Concomitant]
     Active Substance: OXYGEN
     Dosage: 4-5 L
  14. PREVACID [Concomitant]
     Active Substance: LANSOPRAZOLE

REACTIONS (1)
  - Pneumonia [Unknown]

NARRATIVE: CASE EVENT DATE: 20190116
